FAERS Safety Report 20371223 (Version 2)
Quarter: 2022Q3

REPORT INFORMATION
  Report Type: Spontaneous
  Country: US (occurrence: US)
  Receive Date: 20220124
  Receipt Date: 20220826
  Transmission Date: 20221026
  Serious: Yes (Other)
  Sender: FDA-Public Use
  Company Number: US-GILEAD-2022-0566467

PATIENT
  Age: 50 Year
  Sex: Female
  Weight: 73.016 kg

DRUGS (73)
  1. VIREAD [Suspect]
     Active Substance: TENOFOVIR DISOPROXIL FUMARATE
     Indication: HIV infection
     Dosage: UNK
     Route: 048
     Dates: start: 2005
  2. VIREAD [Suspect]
     Active Substance: TENOFOVIR DISOPROXIL FUMARATE
     Dosage: UNK
     Route: 065
     Dates: start: 2007, end: 201906
  3. TRUVADA [Suspect]
     Active Substance: EMTRICITABINE\TENOFOVIR DISOPROXIL FUMARATE
     Indication: HIV infection
     Dosage: UNK
     Route: 065
     Dates: start: 2005, end: 2007
  4. BIKTARVY [Concomitant]
     Active Substance: BICTEGRAVIR SODIUM\EMTRICITABINE\TENOFOVIR ALAFENAMIDE FUMARATE
  5. GENVOYA [Concomitant]
     Active Substance: COBICISTAT\ELVITEGRAVIR\EMTRICITABINE\TENOFOVIR ALAFENAMIDE FUMARATE
  6. EPZICOM [Concomitant]
     Active Substance: ABACAVIR SULFATE\LAMIVUDINE
  7. ISENTRESS [Concomitant]
     Active Substance: RALTEGRAVIR POTASSIUM
  8. LEXIVA [Concomitant]
     Active Substance: FOSAMPRENAVIR CALCIUM
  9. NORVIR [Concomitant]
     Active Substance: RITONAVIR
  10. REYATAZ [Concomitant]
     Active Substance: ATAZANAVIR SULFATE
  11. SUSTIVA [Concomitant]
     Active Substance: EFAVIRENZ
  12. VIRACEPT [Concomitant]
     Active Substance: NELFINAVIR MESYLATE
  13. PREZISTA [Concomitant]
     Active Substance: DARUNAVIR ETHANOLATE
  14. ZOLPIDEM [Concomitant]
     Active Substance: ZOLPIDEM TARTRATE
  15. L METHYLFOLATE CALCIUM [Concomitant]
  16. FENOFIBRATE [Concomitant]
     Active Substance: FENOFIBRATE
  17. PROTOPIC [Concomitant]
     Active Substance: TACROLIMUS
  18. ESOMEPRAZOLE MAGNESIUM [Concomitant]
     Active Substance: ESOMEPRAZOLE MAGNESIUM
  19. ZANTAC [Concomitant]
     Active Substance: RANITIDINE HYDROCHLORIDE
  20. CLONIDINE [Concomitant]
     Active Substance: CLONIDINE
  21. MIDAZOLAM [Concomitant]
     Active Substance: MIDAZOLAM
  22. LOVAZA [Concomitant]
     Active Substance: OMEGA-3-ACID ETHYL ESTERS
  23. MOBIC [Concomitant]
     Active Substance: MELOXICAM
  24. SELENIUM SULFIDE [Concomitant]
     Active Substance: SELENIUM SULFIDE
  25. REGLAN [Concomitant]
     Active Substance: METOCLOPRAMIDE HYDROCHLORIDE
  26. GUAIATUSSIN AC [Concomitant]
     Active Substance: CODEINE PHOSPHATE\GUAIFENESIN
  27. COLACE [Concomitant]
     Active Substance: DOCUSATE SODIUM
  28. VIRIDE NITENS [Concomitant]
  29. PHENERGAN AND CHLORAL HYDRATE [Concomitant]
  30. ATARAX [Concomitant]
     Active Substance: HYDROXYZINE HYDROCHLORIDE
  31. ERGOCALCIFEROL [Concomitant]
     Active Substance: ERGOCALCIFEROL
  32. DEPLIN [CALCIUM LEVOMEFOLATE] [Concomitant]
  33. CIPRO AS [Concomitant]
  34. NUVIGIL [Concomitant]
     Active Substance: ARMODAFINIL
  35. BACTRIM [Concomitant]
     Active Substance: SULFAMETHOXAZOLE\TRIMETHOPRIM
  36. FLAGYL ER [Concomitant]
     Active Substance: METRONIDAZOLE
  37. WESTCORT [Concomitant]
     Active Substance: HYDROCORTISONE VALERATE
  38. DOMPERIDONE [Concomitant]
     Active Substance: DOMPERIDONE
  39. GABAPENTIN [Concomitant]
     Active Substance: GABAPENTIN
  40. LIDEX [Concomitant]
     Active Substance: FLUOCINONIDE
  41. MIRALAX [Concomitant]
     Active Substance: POLYETHYLENE GLYCOL 3350
  42. CALCIUM [Concomitant]
     Active Substance: CALCIUM
  43. NYSTATIN [Concomitant]
     Active Substance: NYSTATIN
  44. MEGACE [Concomitant]
     Active Substance: MEGESTROL ACETATE
  45. MS CONTIN [Concomitant]
     Active Substance: MORPHINE SULFATE
  46. PRILOSEC [Concomitant]
     Active Substance: OMEPRAZOLE MAGNESIUM
  47. FAMOTIDINE [Concomitant]
     Active Substance: FAMOTIDINE
  48. SORIATANE [Concomitant]
     Active Substance: ACITRETIN
  49. GLYCOLAX [Concomitant]
     Active Substance: POLYETHYLENE GLYCOL 3350
  50. METFORMIN [Concomitant]
     Active Substance: METFORMIN HYDROCHLORIDE
  51. CLOTRIMAZOLE [Concomitant]
     Active Substance: CLOTRIMAZOLE
  52. OLOPATADINE [Concomitant]
     Active Substance: OLOPATADINE
  53. JANUVIA [Concomitant]
     Active Substance: SITAGLIPTIN PHOSPHATE
  54. METOPROLOL [Concomitant]
     Active Substance: METOPROLOL
  55. ROSUVASTATIN [Concomitant]
     Active Substance: ROSUVASTATIN
  56. CLARITHROMYCIN [Concomitant]
     Active Substance: CLARITHROMYCIN
  57. PYRIDIUM [Concomitant]
     Active Substance: PHENAZOPYRIDINE
  58. BETHANECHOL [Concomitant]
     Active Substance: BETHANECHOL
  59. EGRIFTA [Concomitant]
     Active Substance: TESAMORELIN ACETATE
  60. PROAIR HFA [Concomitant]
     Active Substance: ALBUTEROL SULFATE
  61. LINZESS [Concomitant]
     Active Substance: LINACLOTIDE
  62. VITAMINS NOS [Concomitant]
     Active Substance: VITAMINS
  63. ASPIRIN [Concomitant]
     Active Substance: ASPIRIN
  64. LOSARTAN [Concomitant]
     Active Substance: LOSARTAN
  65. TRAMADOL [Concomitant]
     Active Substance: TRAMADOL
  66. TORADOL [Concomitant]
     Active Substance: KETOROLAC TROMETHAMINE
  67. OXYCODONE [Concomitant]
     Active Substance: OXYCODONE
  68. LORTAB [Concomitant]
     Active Substance: ACETAMINOPHEN\HYDROCODONE BITARTRATE
  69. PROMETHAZINE [Concomitant]
     Active Substance: PROMETHAZINE HYDROCHLORIDE
  70. AMITRIPTYLINE [Concomitant]
     Active Substance: AMITRIPTYLINE
  71. CEFIXIME [Concomitant]
     Active Substance: CEFIXIME
  72. PERCOCET [Concomitant]
     Active Substance: ACETAMINOPHEN\OXYCODONE HYDROCHLORIDE
  73. CELEBREX [Concomitant]
     Active Substance: CELECOXIB

REACTIONS (14)
  - Osteoporosis [Not Recovered/Not Resolved]
  - Multiple fractures [Not Recovered/Not Resolved]
  - Renal injury [Not Recovered/Not Resolved]
  - Bone demineralisation [Not Recovered/Not Resolved]
  - Pain [Not Recovered/Not Resolved]
  - Anxiety [Not Recovered/Not Resolved]
  - Anhedonia [Not Recovered/Not Resolved]
  - Emotional distress [Not Recovered/Not Resolved]
  - Foot fracture [Not Recovered/Not Resolved]
  - Pain in extremity [Not Recovered/Not Resolved]
  - Back pain [Not Recovered/Not Resolved]
  - Gait disturbance [Not Recovered/Not Resolved]
  - Depression [Not Recovered/Not Resolved]
  - Proteinuria [Not Recovered/Not Resolved]

NARRATIVE: CASE EVENT DATE: 20150301
